FAERS Safety Report 23656401 (Version 3)
Quarter: 2024Q2

REPORT INFORMATION
  Report Type: Report from Study
  Country: GR (occurrence: GR)
  Receive Date: 20240321
  Receipt Date: 20240430
  Transmission Date: 20240715
  Serious: Yes (Death, Hospitalization)
  Sender: FDA-Public Use
  Company Number: GR-ABBVIE-5684978

PATIENT
  Age: 68 Year
  Sex: Male

DRUGS (2)
  1. CARBIDOPA\LEVODOPA [Suspect]
     Active Substance: CARBIDOPA\LEVODOPA
     Indication: Parkinson^s disease
     Dosage: MORNING DOSE: 10.7ML; CONTINUOUS RATE: 4.0ML/H; EXTRA DOSE: 2.7ML (24HOUR ADMINISTRATION)
     Route: 050
     Dates: start: 20230214
  2. CARBIDOPA\LEVODOPA [Suspect]
     Active Substance: CARBIDOPA\LEVODOPA

REACTIONS (2)
  - Myelofibrosis [Fatal]
  - Haematological malignancy [Fatal]

NARRATIVE: CASE EVENT DATE: 20240301
